FAERS Safety Report 15961151 (Version 2)
Quarter: 2019Q1

REPORT INFORMATION
  Report Type: Spontaneous
  Country: ES (occurrence: ES)
  Receive Date: 20190214
  Receipt Date: 20190218
  Transmission Date: 20190417
  Serious: Yes (Hospitalization)
  Sender: FDA-Public Use
  Company Number: ES-UCBSA-2019006070

PATIENT
  Age: 70 Year
  Sex: Male

DRUGS (5)
  1. KEPPRA [Suspect]
     Active Substance: LEVETIRACETAM
     Indication: PRODUCT USED FOR UNKNOWN INDICATION
     Dosage: 1000 MG
  2. QUETIAPINE FUMARATE. [Suspect]
     Active Substance: QUETIAPINE FUMARATE
     Indication: PRODUCT USED FOR UNKNOWN INDICATION
     Dosage: 100 MG
  3. VIMPAT [Suspect]
     Active Substance: LACOSAMIDE
     Indication: PRODUCT USED FOR UNKNOWN INDICATION
     Dosage: 100 MG
  4. BESITRAN [Suspect]
     Active Substance: SERTRALINE HYDROCHLORIDE
     Indication: PRODUCT USED FOR UNKNOWN INDICATION
     Dosage: 50 MG
  5. ZONISAMIDE. [Suspect]
     Active Substance: ZONISAMIDE
     Indication: PRODUCT USED FOR UNKNOWN INDICATION
     Dosage: 50 MG

REACTIONS (2)
  - Hypersomnia [Recovered/Resolved]
  - Ataxia [Recovered/Resolved]

NARRATIVE: CASE EVENT DATE: 20181109
